FAERS Safety Report 9420994 (Version 2)
Quarter: 2013Q3

REPORT INFORMATION
  Report Type: Spontaneous
  Country: PT (occurrence: None)
  Receive Date: 20130723
  Receipt Date: 20130726
  Transmission Date: 20140515
  Serious: Yes (Disabling, Other)
  Sender: FDA-Public Use
  Company Number: E2B_7224991

PATIENT
  Age: 33 Year
  Sex: Female

DRUGS (2)
  1. EUTIROX (LEVOTHYROXINE SODIUM) [Suspect]
     Indication: HYPOTHYROIDISM
     Route: 048
     Dates: start: 20130526
  2. ETHINYLESTRADIOL W/ GESTODENE (FEMODENE) (COATED TABLET) (ETHINYLESTRADIOL, GESTODONE) [Concomitant]

REACTIONS (1)
  - Tachycardia [None]
